FAERS Safety Report 5901197-4 (Version None)
Quarter: 2008Q3

REPORT INFORMATION
  Report Type: 
  Country: None (occurrence: None)
  Receive Date: 20080929
  Receipt Date: 20080627
  Transmission Date: 20090109
  Serious: No
  Sender: FDA-Public Use
  Company Number: US-BRISTOL-MYERS SQUIBB COMPANY-14197222

PATIENT
  Age: 33 Year
  Sex: Female

DRUGS (4)
  1. ORENCIA [Suspect]
     Indication: RHEUMATOID ARTHRITIS
     Dosage: 3 DOSES ADMINSTERED. GIVEN ON 17JAN08,31JAN08,14FEB08,13MAR08,10APR08.
     Route: 042
     Dates: start: 20080410
  2. PREDNISONE [Concomitant]
     Dosage: 1 DOSAGE FORM= 5-20MG
     Dates: start: 20071001
  3. METHOTREXATE [Concomitant]
     Dates: start: 20071001, end: 20080410
  4. ROBAXIN [Concomitant]
     Dates: start: 20071001

REACTIONS (1)
  - HYPERSENSITIVITY [None]
